FAERS Safety Report 8548446 (Version 2)
Quarter: 2013Q4

REPORT INFORMATION
  Report Type: Spontaneous
  Country: US (occurrence: US)
  Receive Date: 20120507
  Receipt Date: 20131226
  Transmission Date: 20140711
  Serious: Yes (Hospitalization)
  Sender: FDA-Public Use
  Company Number: US-BAYER-2012-043066

PATIENT
  Age: 22 Year
  Sex: Female

DRUGS (5)
  1. YAZ [Suspect]
     Dosage: UNK
     Dates: start: 2006, end: 201004
  2. TRAZODONE [Concomitant]
     Dosage: 50 MG, UNK
     Route: 048
  3. OMEPRAZOLE [Concomitant]
     Dosage: 20 MG, UNK
     Route: 048
  4. PANTOPRAZOLE [Concomitant]
     Dosage: 40 MG, UNK
  5. LEVOTHYROXINE [Concomitant]
     Dosage: 125 ?G, UNK
     Route: 048
     Dates: start: 20100212, end: 20100325

REACTIONS (4)
  - Cholecystectomy [None]
  - Injury [None]
  - Pain [None]
  - Cholecystitis [None]
